FAERS Safety Report 6534266-9 (Version None)
Quarter: 2009Q4

REPORT INFORMATION
  Report Type: 
  Country: None (occurrence: None)
  Receive Date: 20091214
  Receipt Date: 20051128
  Transmission Date: 20100525
  Serious: Yes (Other)
  Sender: FDA-Public Use
  Company Number: 472873

PATIENT
  Age: 59 Year
  Sex: Female

DRUGS (6)
  1. PEG-INTERFERON A-2A (RO 25-8310) (PEG-INTERFERON ALFA 2A) [Suspect]
     Indication: HEPATITIS C
  2. RIBAVIRIN [Suspect]
     Indication: HEPATITIS C
  3. INTERFERON ALFA [Suspect]
     Indication: HEPATITIS C
  4. PANTOPRAZOLE SODIUM [Concomitant]
  5. FLUTICASONE PROPIONATE [Concomitant]
  6. IPRATROPIUM INHALER (IPRATROPIUM BROMIDE) [Concomitant]

REACTIONS (3)
  - LEUKOPENIA [None]
  - RASH PAPULAR [None]
  - SARCOIDOSIS [None]
